FAERS Safety Report 5093387-0 (Version None)
Quarter: 2006Q3

REPORT INFORMATION
  Report Type: 
  Country: None (occurrence: None)
  Receive Date: 20060824
  Receipt Date: 20060815
  Transmission Date: 20061208
  Serious: Yes (Hospitalization, Disabling)
  Sender: FDA-Public Use
  Company Number: SEWYE443402MAR06

PATIENT
  Age: 13 Year
  Sex: Male

DRUGS (3)
  1. REFACTO [Suspect]
     Indication: FACTOR VIII DEFICIENCY
     Dosage: 1000 IU 1X PER 3 DAY; 1000 IU 1X PER 2 DAY; 2000 IU 1X PER 1 DAY; INTRAVENOUS
     Route: 042
     Dates: start: 20060101, end: 20060101
  2. REFACTO [Suspect]
     Indication: FACTOR VIII DEFICIENCY
     Dosage: 1000 IU 1X PER 3 DAY; 1000 IU 1X PER 2 DAY; 2000 IU 1X PER 1 DAY; INTRAVENOUS
     Route: 042
     Dates: start: 20060101, end: 20060712
  3. REFACTO [Suspect]
     Indication: FACTOR VIII DEFICIENCY
     Dosage: 1000 IU 1X PER 3 DAY; 1000 IU 1X PER 2 DAY; 2000 IU 1X PER 1 DAY; INTRAVENOUS
     Route: 042
     Dates: start: 20060713

REACTIONS (5)
  - CATHETER RELATED COMPLICATION [None]
  - COAGULATION FACTOR VIII LEVEL DECREASED [None]
  - DRUG EFFECT DECREASED [None]
  - FACTOR VIII INHIBITION [None]
  - MUSCLE HAEMORRHAGE [None]
